FAERS Safety Report 23683039 (Version 4)
Quarter: 2024Q2

REPORT INFORMATION
  Report Type: Spontaneous
  Country: DE (occurrence: DE)
  Receive Date: 20240328
  Receipt Date: 20240502
  Transmission Date: 20240716
  Serious: Yes (Other)
  Sender: FDA-Public Use
  Company Number: DE-Hill Dermaceuticals, Inc.-2154975

PATIENT
  Age: 72 Year
  Sex: Male

DRUGS (1)
  1. TOLAK [Suspect]
     Active Substance: FLUOROURACIL
     Indication: Photodermatosis
     Route: 065
     Dates: start: 20240221, end: 20240304

REACTIONS (2)
  - Condition aggravated [Recovering/Resolving]
  - Photodermatosis [Recovering/Resolving]

NARRATIVE: CASE EVENT DATE: 20240227
